FAERS Safety Report 10084855 (Version 4)
Quarter: 2014Q3

REPORT INFORMATION
  Report Type: Spontaneous
  Country: BR (occurrence: BR)
  Receive Date: 20140417
  Receipt Date: 20140716
  Transmission Date: 20150326
  Serious: Yes (Other)
  Sender: FDA-Public Use
  Company Number: BR-GALDERMA-BR14000961

PATIENT
  Age: 53 Year
  Sex: Female
  Weight: 65 kg

DRUGS (3)
  1. TRILUMA [Suspect]
     Active Substance: HYDROQUINONE
     Indication: PIGMENTATION DISORDER
     Route: 061
     Dates: start: 20131015
  2. TRILUMA [Suspect]
     Active Substance: HYDROQUINONE
     Indication: SKIN HYPOPIGMENTATION
     Route: 061
     Dates: start: 20131020, end: 20131030
  3. SUNMAX SPF 60 [Concomitant]
     Indication: PROPHYLAXIS
     Route: 061
     Dates: start: 20131015

REACTIONS (12)
  - Neck pain [Recovered/Resolved]
  - Skin hyperpigmentation [Not Recovered/Not Resolved]
  - Tremor [Recovered/Resolved]
  - Nasopharyngitis [Not Recovered/Not Resolved]
  - Pain [Not Recovered/Not Resolved]
  - Erythema [Recovered/Resolved]
  - Arrhythmia [Recovered/Resolved]
  - Hypertension [Recovered/Resolved]
  - Drug ineffective [Not Recovered/Not Resolved]
  - Headache [Recovered/Resolved]
  - Fungal infection [None]
  - Tooth pulp haemorrhage [None]

NARRATIVE: CASE EVENT DATE: 201311
